FAERS Safety Report 25385519 (Version 1)
Quarter: 2025Q2

REPORT INFORMATION
  Report Type: Spontaneous
  Country: US (occurrence: None)
  Receive Date: 20250601
  Receipt Date: 20250601
  Transmission Date: 20250716
  Serious: No
  Sender: FDA-CTU
  Company Number: None

PATIENT
  Sex: Male
  Weight: 51.75 kg

DRUGS (5)
  1. LAMICTAL [Suspect]
     Active Substance: LAMOTRIGINE
     Indication: Bipolar I disorder
     Route: 048
     Dates: start: 20240601
  2. LAMOTRIGINE [Concomitant]
     Active Substance: LAMOTRIGINE
  3. ADDERALL [Concomitant]
     Active Substance: AMPHETAMINE ASPARTATE\AMPHETAMINE SULFATE\DEXTROAMPHETAMINE SACCHARATE\DEXTROAMPHETAMINE SULFATE
  4. GUANFACINE [Concomitant]
     Active Substance: GUANFACINE
  5. CLONAZEPAM [Concomitant]
     Active Substance: CLONAZEPAM

REACTIONS (4)
  - Electric shock sensation [None]
  - Headache [None]
  - Migraine [None]
  - Vertigo [None]
